FAERS Safety Report 7354615-1 (Version None)
Quarter: 2011Q1

REPORT INFORMATION
  Report Type: 
  Country: None (occurrence: None)
  Receive Date: 20110310
  Receipt Date: 20110310
  Transmission Date: 20110831
  Serious: No
  Sender: FDA-Public Use
  Company Number: None

PATIENT
  Age: 80 Month
  Sex: Female
  Weight: 47.1741 kg

DRUGS (1)
  1. BONIVA [Suspect]
     Indication: OSTEOPOROSIS

REACTIONS (6)
  - DIARRHOEA [None]
  - GASTRIC PH DECREASED [None]
  - FLATULENCE [None]
  - WEIGHT DECREASED [None]
  - HEADACHE [None]
  - ABDOMINAL PAIN UPPER [None]
